FAERS Safety Report 5489523-4 (Version None)
Quarter: 2007Q4

REPORT INFORMATION
  Report Type: 
  Country: None (occurrence: None)
  Receive Date: 20071016
  Receipt Date: 20071016
  Transmission Date: 20080405
  Serious: Yes (Hospitalization, Other)
  Sender: FDA-Public Use
  Company Number: None

PATIENT
  Age: 87 Year
  Sex: Female
  Weight: 80 kg

DRUGS (8)
  1. IODIXANOL 320 MG1/ML AMERSHAM HEALTH [Suspect]
     Indication: ANGIOGRAM PULMONARY
     Dosage: 150ML  ONCE  IV BOLUS
     Route: 040
     Dates: start: 20070210, end: 20070210
  2. FUROSEMIDE [Suspect]
     Indication: DYSPNOEA
     Dosage: 40MG  TWICE DAILY  IV BOLUS
     Route: 040
     Dates: start: 20070208, end: 20070210
  3. HEPARIN [Concomitant]
  4. METOPROLOL TARTRATE [Concomitant]
  5. ACETYLCYSTEINE [Concomitant]
  6. CEFTRIAXONE [Concomitant]
  7. AZITHROMYCIN [Concomitant]
  8. ESOMEPRAZOLE [Concomitant]

REACTIONS (2)
  - NEPHROPATHY TOXIC [None]
  - RENAL FAILURE ACUTE [None]
